FAERS Safety Report 9698214 (Version 2)
Quarter: 2013Q4

REPORT INFORMATION
  Report Type: Report from Study
  Country: ZA (occurrence: ZA)
  Receive Date: 20131120
  Receipt Date: 20131120
  Transmission Date: 20140711
  Serious: Yes (Other)
  Sender: FDA-Public Use
  Company Number: ZA-BRISTOL-MYERS SQUIBB COMPANY-15970437

PATIENT
  Age: 39 Year
  Sex: Female

DRUGS (5)
  1. ABATACEPT [Suspect]
     Indication: RHEUMATOID ARTHRITIS
     Dosage: INTERRUPT ON 11AUG2011.,RESTARTED ON 18AUG11;125MG
     Route: 058
     Dates: start: 20110727
  2. METHOTREXATE [Suspect]
     Indication: RHEUMATOID ARTHRITIS
     Dosage: INTERRUPT ON 06AUG2011,RESTARTED ON 18AUG11;12.5MG
     Route: 048
     Dates: start: 20110727
  3. PREDNISONE [Concomitant]
     Dates: start: 20110506
  4. TREPILINE [Concomitant]
     Dates: start: 2010
  5. ULTRA K [Concomitant]
     Dates: start: 20110423

REACTIONS (2)
  - Mouth ulceration [Not Recovered/Not Resolved]
  - Accidental overdose [Recovered/Resolved]
